FAERS Safety Report 8260097-8 (Version None)
Quarter: 2012Q2

REPORT INFORMATION
  Report Type: 
  Country: None (occurrence: None)
  Receive Date: 20120404
  Receipt Date: 20120326
  Transmission Date: 20120825
  Serious: Yes (Hospitalization)
  Sender: FDA-Public Use
  Company Number: ES-ACTELION-A-CH2012-63286

PATIENT
  Age: 39 Year
  Sex: Female

DRUGS (2)
  1. TRACLEER [Suspect]
     Indication: THROMBOANGIITIS OBLITERANS
     Dosage: 62.5 MG, BID
     Route: 048
  2. TRACLEER [Suspect]
     Dosage: 125 MG, BID
     Route: 048

REACTIONS (2)
  - SKIN ULCER [None]
  - LEG AMPUTATION [None]
